FAERS Safety Report 11194523 (Version 2)
Quarter: 2015Q2

REPORT INFORMATION
  Report Type: Spontaneous
  Country: BR (occurrence: BR)
  Receive Date: 20150616
  Receipt Date: 20150629
  Transmission Date: 20150821
  Serious: Yes (Other)
  Sender: FDA-Public Use
  Company Number: PHHY2015BR065902

PATIENT
  Age: 74 Year
  Sex: Female
  Weight: 74 kg

DRUGS (4)
  1. ZETSIM [Concomitant]
     Active Substance: EZETIMIBE\SIMVASTATIN
     Indication: BLOOD CHOLESTEROL INCREASED
     Dosage: 1 DF, QD
     Route: 048
  2. DIOVAN [Suspect]
     Active Substance: VALSARTAN
     Indication: HYPERTENSION
     Dosage: QD IN THE MORNING
     Route: 048
  3. KARVIL [Concomitant]
     Indication: CARDIAC DISCOMFORT
     Dosage: 2 DF, QD
     Route: 048
  4. MODURETIC 5-50 [Concomitant]
     Active Substance: AMILORIDE HYDROCHLORIDE\HYDROCHLOROTHIAZIDE
     Indication: DIURETIC THERAPY
     Dosage: 1 DF, QD
     Route: 048

REACTIONS (8)
  - Somnolence [Recovering/Resolving]
  - Osteoarthritis [Not Recovered/Not Resolved]
  - Vitamin D deficiency [Recovering/Resolving]
  - Neck pain [Recovering/Resolving]
  - Vitamin B complex deficiency [Recovering/Resolving]
  - Headache [Recovering/Resolving]
  - Osteoporosis [Not Recovered/Not Resolved]
  - Blood pressure increased [Not Recovered/Not Resolved]

NARRATIVE: CASE EVENT DATE: 201505
